FAERS Safety Report 7238547-5 (Version None)
Quarter: 2011Q1

REPORT INFORMATION
  Report Type: 
  Country: None (occurrence: None)
  Receive Date: 20110121
  Receipt Date: 20110114
  Transmission Date: 20110831
  Serious: Yes (Other)
  Sender: FDA-Public Use
  Company Number: NO-JNJFOC-20110104273

PATIENT
  Age: 33 Year
  Sex: Male

DRUGS (2)
  1. REMICADE [Suspect]
     Dosage: 5TH INFUSION  6 ML/HR
     Route: 042
  2. REMICADE [Suspect]
     Indication: PRODUCT USED FOR UNKNOWN INDICATION
     Dosage: 5TH INFUSION  6 ML/HR
     Route: 042

REACTIONS (5)
  - INFUSION RELATED REACTION [None]
  - BLOOD PRESSURE INCREASED [None]
  - OEDEMA MUCOSAL [None]
  - HEART RATE INCREASED [None]
  - DYSPNOEA [None]
